FAERS Safety Report 5048490-8 (Version None)
Quarter: 2006Q3

REPORT INFORMATION
  Report Type: 
  Country: None (occurrence: None)
  Receive Date: 20060705
  Receipt Date: 20060619
  Transmission Date: 20061208
  Serious: Yes (Hospitalization)
  Sender: FDA-Public Use
  Company Number: GBR-2006-0002365

PATIENT
  Age: 59 Year
  Sex: Male

DRUGS (5)
  1. HYDROMORPHONE HYDROCHLORIDE [Suspect]
     Dosage: 1 DF, DAILY, ORAL
     Route: 048
     Dates: start: 20051206, end: 20060418
  2. FLUOROURACIL [Suspect]
     Indication: LYMPHADENOPATHY
     Dosage: INTRAVENOUS
     Route: 042
     Dates: start: 20051206, end: 20060418
  3. AVASTIN [Suspect]
     Indication: LYMPHADENOPATHY
     Dosage: 300 MG, SINGLE
     Dates: start: 20051206, end: 20060418
  4. ZOLPIDEM TARTRATE [Suspect]
     Dosage: 10 MG
     Dates: start: 20051206
  5. CAMPTOSAR [Suspect]
     Dosage: 305 MG, SINGLE
     Dates: start: 20051206

REACTIONS (5)
  - CEREBROVASCULAR ACCIDENT [None]
  - DIPLOPIA [None]
  - EPILEPSY [None]
  - LOSS OF CONSCIOUSNESS [None]
  - NERVOUS SYSTEM DISORDER [None]
